FAERS Safety Report 10270669 (Version 1)
Quarter: 2014Q3

REPORT INFORMATION
  Report Type: Spontaneous
  Country: FR (occurrence: FR)
  Receive Date: 20140701
  Receipt Date: 20140701
  Transmission Date: 20150326
  Serious: Yes (Hospitalization)
  Sender: FDA-Public Use
  Company Number: FR-ASTRAZENECA-2014SE46248

PATIENT
  Age: 31124 Day
  Sex: Female

DRUGS (8)
  1. GLYCERYL TRINITRATE [Concomitant]
     Active Substance: NITROGLYCERIN
  2. PLAVIX [Concomitant]
     Active Substance: CLOPIDOGREL BISULFATE
  3. AMIODARONE [Concomitant]
     Active Substance: AMIODARONE
  4. LOGIMAX [Concomitant]
     Active Substance: FELODIPINE\METOPROLOL SUCCINATE
     Dosage: 47.5 MG/5 MG, 1 DOSAGE FORM DAILY
  5. CRESTOR [Suspect]
     Active Substance: ROSUVASTATIN CALCIUM
     Indication: DYSLIPIDAEMIA
     Route: 048
     Dates: start: 201405
  6. ATACAND [Concomitant]
     Active Substance: CANDESARTAN CILEXETIL
  7. SEROPLEX [Concomitant]
     Active Substance: ESCITALOPRAM OXALATE
  8. CORDARONE [Suspect]
     Active Substance: AMIODARONE HYDROCHLORIDE
     Indication: ATRIAL FIBRILLATION
     Route: 048
     Dates: start: 200811, end: 201405

REACTIONS (2)
  - Lung disorder [Recovered/Resolved]
  - Ischaemic cardiomyopathy [Unknown]

NARRATIVE: CASE EVENT DATE: 20140528
